FAERS Safety Report 17103438 (Version 1)
Quarter: 2019Q4

REPORT INFORMATION
  Report Type: Spontaneous
  Country: US (occurrence: US)
  Receive Date: 20191202
  Receipt Date: 20191202
  Transmission Date: 20200122
  Serious: Yes (Other)
  Sender: FDA-Public Use
  Company Number: None

PATIENT
  Age: 38 Year
  Sex: Female
  Weight: 83.97 kg

DRUGS (2)
  1. NO DRUG NAME [Concomitant]
     Dates: start: 20191106, end: 20191113
  2. INJECTAFER [Suspect]
     Active Substance: FERRIC CARBOXYMALTOSE
     Indication: ANAEMIA
     Dosage: ?          OTHER FREQUENCY:Q7D X 1 CYCLE;?
     Route: 042

REACTIONS (4)
  - Pruritus [None]
  - Chest discomfort [None]
  - Retching [None]
  - Pain in extremity [None]

NARRATIVE: CASE EVENT DATE: 20191113
